FAERS Safety Report 7050678-1 (Version None)
Quarter: 2010Q4

REPORT INFORMATION
  Report Type: 
  Country: None (occurrence: None)
  Receive Date: 20101018
  Receipt Date: 20101005
  Transmission Date: 20110411
  Serious: Yes (Life-Threatening, Hospitalization, Other)
  Sender: FDA-Public Use
  Company Number: GB-MYLANLABS-2010S1018414

PATIENT
  Age: 9 Year
  Sex: Male

DRUGS (7)
  1. BACLOFEN [Suspect]
     Indication: PRODUCT USED FOR UNKNOWN INDICATION
     Route: 048
  2. CHLORAL HYDRATE [Concomitant]
     Indication: PRODUCT USED FOR UNKNOWN INDICATION
  3. LORAZEPAM [Concomitant]
     Indication: PRODUCT USED FOR UNKNOWN INDICATION
  4. PARACETAMOL [Concomitant]
     Indication: PRODUCT USED FOR UNKNOWN INDICATION
  5. RANITIDINE [Concomitant]
     Indication: PRODUCT USED FOR UNKNOWN INDICATION
  6. SODIUM BICARBONATE [Concomitant]
     Indication: PRODUCT USED FOR UNKNOWN INDICATION
  7. TRIHEXYPHENIDYL HCL [Concomitant]
     Indication: PRODUCT USED FOR UNKNOWN INDICATION

REACTIONS (17)
  - AGITATION [None]
  - ALANINE AMINOTRANSFERASE INCREASED [None]
  - ASPARTATE AMINOTRANSFERASE INCREASED [None]
  - BLOOD ALBUMIN DECREASED [None]
  - C-REACTIVE PROTEIN INCREASED [None]
  - COUGH [None]
  - DIARRHOEA [None]
  - DYSTONIA [None]
  - HAEMATEMESIS [None]
  - HYPERPYREXIA [None]
  - HYPOTENSION [None]
  - HYPOXIA [None]
  - MUSCLE SPASTICITY [None]
  - ORAL CANDIDIASIS [None]
  - RHABDOMYOLYSIS [None]
  - TACHYCARDIA [None]
  - TACHYPNOEA [None]
